FAERS Safety Report 8609389-0 (Version None)
Quarter: 2012Q3

REPORT INFORMATION
  Report Type: 
  Country: None (occurrence: None)
  Receive Date: 20120821
  Receipt Date: 20120813
  Transmission Date: 20120928
  Serious: Yes (Hospitalization)
  Sender: FDA-Public Use
  Company Number: FR-BRISTOL-MYERS SQUIBB COMPANY-16412470

PATIENT
  Age: 68 Year
  Sex: Male

DRUGS (3)
  1. ABILIFY [Suspect]
     Indication: MANIA
     Dates: start: 20110601, end: 20111001
  2. OXAZEPAM [Suspect]
     Indication: MANIA
     Route: 048
     Dates: start: 20110601
  3. PAROXETINE HCL [Suspect]
     Indication: MANIA
     Route: 048
     Dates: start: 20110601

REACTIONS (2)
  - PULMONARY EMBOLISM [None]
  - HAEMATURIA [None]
